FAERS Safety Report 24970285 (Version 1)
Quarter: 2025Q1

REPORT INFORMATION
  Report Type: Spontaneous
  Country: CA (occurrence: CA)
  Receive Date: 20250214
  Receipt Date: 20250214
  Transmission Date: 20250409
  Serious: Yes (Hospitalization)
  Sender: HIKMA
  Company Number: CA-HIKMA PHARMACEUTICALS-CA-H14001-25-01223

PATIENT
  Age: 84 Year
  Sex: Male

DRUGS (5)
  1. CEFADROXIL [Suspect]
     Active Substance: CEFADROXIL
     Indication: Antibiotic therapy
     Route: 065
  2. CEFAZOLIN [Suspect]
     Active Substance: CEFAZOLIN
     Indication: Antibiotic therapy
     Route: 042
  3. AMLODIPINE MESYLATE [Concomitant]
     Active Substance: AMLODIPINE MESYLATE
     Indication: Product used for unknown indication
     Dosage: 2.5 MILLIGRAM, QD
     Route: 065
  4. ATROPINE [Concomitant]
     Active Substance: ATROPINE
     Indication: Blood pressure decreased
     Route: 042
  5. HYDROCHLOROTHIAZIDE\IRBESARTAN [Concomitant]
     Active Substance: HYDROCHLOROTHIAZIDE\IRBESARTAN
     Indication: Hypertension
     Dosage: UNK, QD
     Route: 065

REACTIONS (7)
  - Deep vein thrombosis [Recovered/Resolved]
  - Device related thrombosis [Recovered/Resolved]
  - Drug hypersensitivity [Recovered/Resolved]
  - Eosinophilia [Recovered/Resolved]
  - Pulmonary embolism [Recovered/Resolved]
  - Rash [Recovered/Resolved]
  - Thrombocytopenia [Recovered/Resolved]
